FAERS Safety Report 6276213-3 (Version None)
Quarter: 2009Q3

REPORT INFORMATION
  Report Type: 
  Country: None (occurrence: None)
  Receive Date: 20090720
  Receipt Date: 20090720
  Transmission Date: 20100115
  Serious: Yes (Hospitalization)
  Sender: FDA-Public Use
  Company Number: None

PATIENT
  Sex: Male
  Weight: 57.5 kg

DRUGS (1)
  1. MEMANTINE HCL [Suspect]
     Dosage: 1825 MG

REACTIONS (5)
  - ASTHENIA [None]
  - DEHYDRATION [None]
  - GAIT DISTURBANCE [None]
  - MENTAL STATUS CHANGES [None]
  - WEIGHT DECREASED [None]
